FAERS Safety Report 5336518-7 (Version None)
Quarter: 2007Q2

REPORT INFORMATION
  Report Type: 
  Country: None (occurrence: None)
  Receive Date: 20070315
  Receipt Date: 20060127
  Transmission Date: 20071010
  Serious: Yes (Hospitalization)
  Sender: FDA-Public Use
  Company Number: 1-14503607

PATIENT
  Age: 82 Year
  Sex: Male

DRUGS (3)
  1. ABBOKINASE [Suspect]
     Indication: THROMBOSIS
     Dosage: 500000 UNIT, 1 IN 1 D, INTRAVENOUS
     Route: 042
     Dates: start: 20060124, end: 20060127
  2. ADVAIR DISKUS 100/50 [Concomitant]
  3. SALBUTAMOL [Concomitant]

REACTIONS (1)
  - CEREBRAL HAEMORRHAGE [None]
